FAERS Safety Report 6971751-X (Version None)
Quarter: 2010Q3

REPORT INFORMATION
  Report Type: 
  Country: None (occurrence: None)
  Receive Date: 20100903
  Receipt Date: 20100806
  Transmission Date: 20110219
  Serious: Yes (Hospitalization)
  Sender: FDA-Public Use
  Company Number: JP-SOLVAY-00310003291

PATIENT
  Age: 85 Year
  Sex: Male

DRUGS (10)
  1. FLUVOXAMINE MALEATE [Suspect]
     Indication: DEPRESSION
     Dosage: 25 MILLIGRAM(S) ORAL
     Route: 048
     Dates: start: 20100511, end: 20100519
  2. DIOVAN [Concomitant]
  3. LASIX [Concomitant]
  4. FAMOTIDINE [Concomitant]
  5. VONTROL [Concomitant]
  6. ALOSENN (SENNA LEAF/ SENNA POD) [Concomitant]
  7. LEVOTHYROXINE SODIUM [Concomitant]
  8. NAUZELIN (DOMPERIDONE) [Concomitant]
  9. DAI-KENCHU-TO (DAI-KENCHU-TO) [Concomitant]
  10. DOGMATYL (SULPIRIDE) [Concomitant]

REACTIONS (9)
  - ACINETOBACTER TEST POSITIVE [None]
  - ALANINE AMINOTRANSFERASE INCREASED [None]
  - ASPARTATE AMINOTRANSFERASE INCREASED [None]
  - BLOOD ALKALINE PHOSPHATASE INCREASED [None]
  - BLOOD LACTATE DEHYDROGENASE INCREASED [None]
  - DISSEMINATED INTRAVASCULAR COAGULATION [None]
  - HEPATIC FUNCTION ABNORMAL [None]
  - SEPSIS [None]
  - WHITE BLOOD CELL COUNT DECREASED [None]
